FAERS Safety Report 21573274 (Version 5)
Quarter: 2023Q1

REPORT INFORMATION
  Report Type: Report from Study
  Country: US (occurrence: US)
  Receive Date: 20221109
  Receipt Date: 20230227
  Transmission Date: 20230418
  Serious: Yes (Other)
  Sender: FDA-Public Use
  Company Number: US-002147023-NVSC2022US251557

PATIENT
  Sex: Male

DRUGS (1)
  1. ENTRESTO [Suspect]
     Active Substance: SACUBITRIL\VALSARTAN
     Indication: Cardiomyopathy
     Dosage: 1 DOSAGE FORM, BID
     Route: 048
     Dates: start: 20220815

REACTIONS (4)
  - Glycosylated haemoglobin increased [Unknown]
  - Anger [Recovered/Resolved]
  - COVID-19 [Recovered/Resolved]
  - Product use in unapproved indication [Unknown]
